FAERS Safety Report 20770988 (Version 1)
Quarter: 2022Q2

REPORT INFORMATION
  Report Type: Spontaneous
  Country: US (occurrence: None)
  Receive Date: 20220429
  Receipt Date: 20220429
  Transmission Date: 20220721
  Serious: No
  Sender: FDA-Public Use
  Company Number: None

PATIENT
  Age: 44 Year
  Sex: Male

DRUGS (1)
  1. HUMIRA [Suspect]
     Active Substance: ADALIMUMAB
     Indication: Ankylosing spondylitis
     Dosage: OTHER FREQUENCY : EVERY 14 DAYS;?
     Route: 058
     Dates: start: 202202

REACTIONS (5)
  - Device malfunction [None]
  - Device leakage [None]
  - Burning sensation [None]
  - Lacrimation increased [None]
  - Eye irritation [None]

NARRATIVE: CASE EVENT DATE: 20220429
